FAERS Safety Report 25859028 (Version 1)
Quarter: 2025Q3

REPORT INFORMATION
  Report Type: Spontaneous
  Country: JP (occurrence: JP)
  Receive Date: 20250929
  Receipt Date: 20250929
  Transmission Date: 20251021
  Serious: Yes (Hospitalization, Other)
  Sender: ACCORD
  Company Number: JP-Accord-506345

PATIENT
  Age: 74 Year
  Sex: Male
  Weight: 69.5 kg

DRUGS (2)
  1. GEMCITABINE [Suspect]
     Active Substance: GEMCITABINE
     Indication: Pancreatic carcinoma
  2. TS-1 [Suspect]
     Active Substance: GIMERACIL\OTERACIL POTASSIUM\TEGAFUR
     Indication: Pancreatic carcinoma

REACTIONS (6)
  - Neutropenia [Recovered/Resolved]
  - Constipation [Recovered/Resolved]
  - Colitis [Recovered/Resolved]
  - Pancytopenia [Recovered/Resolved]
  - COVID-19 [Recovered/Resolved]
  - Sepsis [Recovered/Resolved]
